FAERS Safety Report 25768250 (Version 1)
Quarter: 2025Q3

REPORT INFORMATION
  Report Type: Spontaneous
  Country: US (occurrence: US)
  Receive Date: 20250905
  Receipt Date: 20250905
  Transmission Date: 20251020
  Serious: No
  Sender: DOMPE FARMACEUTICI
  Company Number: US-FARMAPROD-202506-1948

PATIENT
  Age: 72 Year
  Sex: Female

DRUGS (26)
  1. OXERVATE [Suspect]
     Active Substance: CENEGERMIN-BKBJ
     Indication: Dry eye
     Route: 047
     Dates: start: 20250606
  2. OXERVATE [Suspect]
     Active Substance: CENEGERMIN-BKBJ
  3. MINERALS\VITAMINS [Concomitant]
     Active Substance: MINERALS\VITAMINS
  4. CITRUCEL [Concomitant]
     Active Substance: METHYLCELLULOSE (4000 CPS)
  5. BERBERINE [Concomitant]
     Active Substance: BERBERINE
  6. AZELAIC ACID [Concomitant]
     Active Substance: AZELAIC ACID
  7. ALLEGRA ALLERGY [Concomitant]
     Active Substance: FEXOFENADINE HYDROCHLORIDE
  8. TYLENOL [Concomitant]
     Active Substance: ACETAMINOPHEN
  9. ZINC-15 [Concomitant]
  10. MELATONIN [Concomitant]
     Active Substance: MELATONIN
  11. ASCORBIC ACID\SODIUM ASCORBATE [Concomitant]
     Active Substance: ASCORBIC ACID\SODIUM ASCORBATE
  12. EYE DROPS [TETRYZOLINE HYDROCHLORIDE] [Concomitant]
  13. IVIZIA DRY EYE [Concomitant]
     Active Substance: POVIDONE
  14. REFRESH OPTIVE MEGA-3 [Concomitant]
     Active Substance: CARBOXYMETHYLCELLULOSE SODIUM\GLYCERIN\POLYSORBATE 80
  15. REFRESH PLUS [Concomitant]
     Active Substance: CARBOXYMETHYLCELLULOSE SODIUM
  16. REFRESH CELLUVISC [Concomitant]
     Active Substance: CARBOXYMETHYLCELLULOSE SODIUM
  17. CYCLOSPORINE [Concomitant]
     Active Substance: CYCLOSPORINE
  18. MAGNESIUM [Concomitant]
     Active Substance: MAGNESIUM
  19. VITAMIN D 400 [COLECALCIFEROL] [Concomitant]
  20. CALCIUM [Concomitant]
     Active Substance: CALCIUM
  21. APPLE CIDER VINEGAR [MALUS SPP. VINEGAR EXTRACT] [Concomitant]
  22. PROBIOTIC 10B [Concomitant]
  23. GLUCOSAMINE COMPLEX-MSM [GLUCOSAMINE HYDROCHLORIDE;GLUCOSAMINE SULFATE [Concomitant]
  24. ACYCLOVIR [Concomitant]
     Active Substance: ACYCLOVIR
  25. ESTRADIOL [Concomitant]
     Active Substance: ESTRADIOL
  26. ASPIRIN [Concomitant]
     Active Substance: ASPIRIN

REACTIONS (4)
  - Head discomfort [Unknown]
  - Headache [Unknown]
  - Eye pain [Unknown]
  - Off label use [Unknown]

NARRATIVE: CASE EVENT DATE: 20250606
